FAERS Safety Report 8186806-4 (Version None)
Quarter: 2012Q1

REPORT INFORMATION
  Report Type: 
  Country: None (occurrence: None)
  Receive Date: 20120306
  Receipt Date: 20120228
  Transmission Date: 20120608
  Serious: Yes (Other)
  Sender: FDA-Public Use
  Company Number: FR-BRISTOL-MYERS SQUIBB COMPANY-16424061

PATIENT
  Age: 18 Year
  Sex: Female

DRUGS (3)
  1. VOLTAREN [Concomitant]
     Dosage: LONG TERM
  2. ACETAMINOPHEN [Concomitant]
  3. ORENCIA [Suspect]
     Indication: JUVENILE ARTHRITIS
     Dates: start: 20110901

REACTIONS (2)
  - EOSINOPHILIA [None]
  - GASTROENTERITIS [None]
